FAERS Safety Report 4849913-7 (Version None)
Quarter: 2005Q4

REPORT INFORMATION
  Report Type: 
  Country: None (occurrence: None)
  Receive Date: 20051115
  Receipt Date: 20050727
  Transmission Date: 20060501
  Serious: Yes (Other)
  Sender: FDA-Public Use
  Company Number: 412284

PATIENT
  Age: 67 Year
  Sex: Female
  Weight: 77.1 kg

DRUGS (2)
  1. PEGASYS [Suspect]
     Indication: HEPATITIS C
     Dosage: 1 PER WEEK SUBCUTANEOUS
     Route: 058
     Dates: start: 20050417
  2. COPEGUS [Suspect]
     Indication: HEPATITIS C
     Dosage: 800 MG DAILY ORAL
     Route: 048
     Dates: start: 20050417

REACTIONS (11)
  - CHROMATURIA [None]
  - EAR PAIN [None]
  - FATIGUE [None]
  - GENITAL PRURITUS FEMALE [None]
  - HEADACHE [None]
  - PAIN OF SKIN [None]
  - PHARYNGOLARYNGEAL PAIN [None]
  - PLATELET COUNT DECREASED [None]
  - PRURITUS [None]
  - RASH [None]
  - WHITE BLOOD CELL COUNT DECREASED [None]
